FAERS Safety Report 5740701-6 (Version None)
Quarter: 2008Q2

REPORT INFORMATION
  Report Type: 
  Country: None (occurrence: None)
  Receive Date: 20080516
  Receipt Date: 20080507
  Transmission Date: 20081010
  Serious: Yes (Hospitalization, Disabling)
  Sender: FDA-Public Use
  Company Number: DE-ABBOTT-08P-062-0450802-00

PATIENT
  Sex: Female

DRUGS (7)
  1. HUMIRA [Suspect]
     Indication: PSORIATIC ARTHROPATHY
     Route: 058
     Dates: start: 20080207, end: 20080403
  2. CANDESARTAN [Concomitant]
     Indication: HYPERTENSION
  3. XIPAMIDE [Concomitant]
     Indication: HYPERTENSION
  4. SINUHEXAL [Concomitant]
     Indication: DRUG USE FOR UNKNOWN INDICATION
  5. CARBAMAZEPINE [Concomitant]
     Indication: DIABETIC NEUROPATHY
  6. CARBAMAZEPINE [Concomitant]
     Indication: PARAESTHESIA
  7. CARBAMAZEPINE [Concomitant]
     Indication: PAIN

REACTIONS (4)
  - ERYSIPELAS [None]
  - KETOACIDOSIS [None]
  - STREPTOCOCCAL SEPSIS [None]
  - UNRESPONSIVE TO STIMULI [None]
